FAERS Safety Report 13917687 (Version 1)
Quarter: 2017Q3

REPORT INFORMATION
  Report Type: Spontaneous
  Country: GB (occurrence: GB)
  Receive Date: 20170829
  Receipt Date: 20170829
  Transmission Date: 20171127
  Serious: Yes (Life-Threatening, Other)
  Sender: FDA-Public Use
  Company Number: GB-TEVA-799630ACC

PATIENT
  Age: 57 Year
  Sex: Female
  Weight: 49 kg

DRUGS (2)
  1. AMOXICILLIN. [Suspect]
     Active Substance: AMOXICILLIN
     Route: 048
     Dates: start: 20170801, end: 20170806
  2. NITROFURANTOIN. [Suspect]
     Active Substance: NITROFURANTOIN

REACTIONS (4)
  - Rash [Recovered/Resolved]
  - Hypersensitivity [Recovered/Resolved]
  - Sensation of foreign body [Recovered/Resolved]
  - Pharyngeal oedema [Recovered/Resolved]

NARRATIVE: CASE EVENT DATE: 20170801
